FAERS Safety Report 8374330-5 (Version None)
Quarter: 2012Q2

REPORT INFORMATION
  Report Type: 
  Country: None (occurrence: None)
  Receive Date: 20120521
  Receipt Date: 20120515
  Transmission Date: 20120825
  Serious: Yes (Other)
  Sender: FDA-Public Use
  Company Number: GB-ASTRAZENECA-2012SE31239

PATIENT
  Age: 69 Year
  Sex: Female
  Weight: 63 kg

DRUGS (8)
  1. ATORVASTATIN CALCIUM [Concomitant]
     Dates: start: 20120424
  2. ZOPICLONE [Concomitant]
     Dates: start: 20120503
  3. IBUPROFEN [Concomitant]
  4. OMEPRAZOLE [Suspect]
     Route: 048
     Dates: start: 20120503
  5. ZOPICLONE [Concomitant]
     Dates: start: 20120207, end: 20120306
  6. ATORVASTATIN CALCIUM [Concomitant]
     Dates: start: 20120131, end: 20120228
  7. FLUOXETINE [Concomitant]
     Dates: start: 20120301, end: 20120423
  8. FLUOXETINE [Concomitant]
     Dates: start: 20120424

REACTIONS (2)
  - LIP ULCERATION [None]
  - LIP BLISTER [None]
